FAERS Safety Report 9290051 (Version 1)
Quarter: 2012Q4

REPORT INFORMATION
  Report Type: Spontaneous
  Country: US (occurrence: None)
  Receive Date: 20121001
  Receipt Date: 20121001
  Transmission Date: 20130627
  Serious: Yes (Hospitalization)
  Sender: FDA-Public Use
  Company Number: JPI-P-005267

PATIENT
  Age: 52 Year
  Sex: Female

DRUGS (7)
  1. XYREM (500 MILLIGRAM/MILLILITERS, SOLUTION) (SODIUM OXYBATE) [Suspect]
     Indication: NARCOLEPSY
     Route: 048
     Dates: start: 20081007, end: 200810
  2. XYREM (500 MILLIGRAM/MILLILITERS, SOLUTION) (SODIUM OXYBATE) [Suspect]
     Indication: CATAPLEXY
     Route: 048
     Dates: start: 20081007, end: 200810
  3. XYREM (500 MILLIGRAM/MILLILITERS, SOLUTION) (SODIUM OXYBATE) [Suspect]
     Indication: NARCOLEPSY
     Route: 048
  4. XYREM (500 MILLIGRAM/MILLILITERS, SOLUTION) (SODIUM OXYBATE) [Suspect]
     Indication: CATAPLEXY
     Route: 048
  5. DULOXETINE HYDROCHLORIDE [Suspect]
     Indication: DEPRESSION
  6. MODAFINIL [Concomitant]
  7. METHYLPHENIDATE HYDROCHLORIDE [Concomitant]

REACTIONS (7)
  - Diarrhoea [None]
  - Abdominal pain [None]
  - Nausea [None]
  - Somnolence [None]
  - Feeling abnormal [None]
  - Blood sodium decreased [None]
  - Feeling abnormal [None]
